FAERS Safety Report 22627215 (Version 2)
Quarter: 2024Q2

REPORT INFORMATION
  Report Type: Spontaneous
  Country: US (occurrence: US)
  Receive Date: 20230622
  Receipt Date: 20240515
  Transmission Date: 20240716
  Serious: No
  Sender: FDA-Public Use
  Company Number: US-VIIV HEALTHCARE LIMITED-US2023082486

PATIENT
  Sex: Male

DRUGS (1)
  1. TRIUMEQ [Suspect]
     Active Substance: ABACAVIR SULFATE\DOLUTEGRAVIR SODIUM\LAMIVUDINE
     Indication: HIV infection CDC Group III
     Dosage: 1 DF, QD (600-50-300MG 1 TABLET)
     Route: 048
     Dates: start: 20230622

REACTIONS (2)
  - Product use issue [Unknown]
  - Product dose omission issue [Unknown]
